FAERS Safety Report 5358957-0 (Version None)
Quarter: 2007Q2

REPORT INFORMATION
  Report Type: 
  Country: None (occurrence: None)
  Receive Date: 20070615
  Receipt Date: 20070607
  Transmission Date: 20071010
  Serious: Yes (Hospitalization, Other)
  Sender: FDA-Public Use
  Company Number: HQWYE236204DEC06

PATIENT
  Sex: Female

DRUGS (9)
  1. TEMSIROLIMUS [Suspect]
     Indication: MULTIPLE SCLEROSIS
     Route: 048
     Dates: start: 20030912, end: 20050511
  2. OXYCODONE HCL [Concomitant]
     Dosage: 5 MG DAILY DOSE
     Route: 048
     Dates: start: 20061122, end: 20061123
  3. NEXIUM [Concomitant]
     Dosage: 20 MG DAILY DOSE
     Route: 048
     Dates: start: 20061101
  4. METOCLOPRAMIDE [Concomitant]
     Dosage: 10 MG DAILY DOSE
     Route: 048
     Dates: start: 20061122, end: 20061122
  5. METOCLOPRAMIDE [Concomitant]
     Dosage: 20 MG DAILY DOSE
     Route: 048
     Dates: start: 20061123, end: 20061123
  6. PANTOPRAZOLE SODIUM [Concomitant]
     Dosage: 40 MG DAILY DOSE
     Route: 048
     Dates: start: 20061122, end: 20061123
  7. TEMAZEPAM [Concomitant]
     Dosage: 10 MG DAILY DOSE
     Route: 048
     Dates: start: 20061122, end: 20061122
  8. PARACETAMOL [Concomitant]
     Dosage: 1 G DAILY DOSE
     Route: 048
     Dates: start: 20061122, end: 20061122
  9. PARACETAMOL [Concomitant]
     Dosage: 2G DAILY DOSE
     Route: 048
     Dates: start: 20061123, end: 20061123

REACTIONS (1)
  - OVARIAN CANCER [None]
